FAERS Safety Report 4744751-8 (Version None)
Quarter: 2005Q3

REPORT INFORMATION
  Report Type: 
  Country: None (occurrence: None)
  Receive Date: 20050815
  Receipt Date: 20050609
  Transmission Date: 20060218
  Serious: Yes (Hospitalization)
  Sender: FDA-Public Use
  Company Number: 200515154GDDC

PATIENT
  Age: 68 Year
  Sex: Male

DRUGS (2)
  1. NICORETTE [Suspect]
     Indication: NICOTINE DEPENDENCE
     Dosage: 4MG SIX TIMES PER DAY
     Route: 002
     Dates: start: 20050517, end: 20050517
  2. NICOTINE [Suspect]
     Indication: NICOTINE DEPENDENCE
     Dosage: 10MG FOUR TIMES PER DAY
     Route: 055
     Dates: start: 20050519, end: 20050519

REACTIONS (8)
  - BURNING SENSATION [None]
  - CHEMICAL POISONING [None]
  - FACIAL PAIN [None]
  - HEART RATE INCREASED [None]
  - HYPOTENSION [None]
  - INTESTINAL HAEMORRHAGE [None]
  - LOSS OF CONSCIOUSNESS [None]
  - VOMITING [None]
